FAERS Safety Report 4579267-5 (Version None)
Quarter: 2005Q1

REPORT INFORMATION
  Report Type: 
  Country: None (occurrence: None)
  Receive Date: 20050210
  Receipt Date: 20050210
  Transmission Date: 20050727
  Serious: No
  Sender: FDA-Public Use
  Company Number: None

PATIENT
  Sex: Female
  Weight: 59.42 kg

DRUGS (4)
  1. CISPLATIN [Suspect]
     Dosage: 51 MG IV Q WEEK X 6 DOSES
     Route: 042
  2. FLUOROURACIL [Suspect]
     Dosage: CONTINOUS INFUSION 225 MG/DAY FOR 38 DAYS
     Route: 042
  3. INTERFERON [Suspect]
     Dosage: 3 MILLION UNITS SQ 3X/WEEK FOR 5 1/2 WEEKS
     Route: 058
  4. XRT [Concomitant]

REACTIONS (12)
  - BACTERIA STOOL IDENTIFIED [None]
  - BACTERIA URINE IDENTIFIED [None]
  - BLOOD ALBUMIN DECREASED [None]
  - BLOOD PRESSURE DECREASED [None]
  - BLOOD SODIUM DECREASED [None]
  - BLOOD UREA INCREASED [None]
  - BODY TEMPERATURE DECREASED [None]
  - DIARRHOEA [None]
  - HEART RATE INCREASED [None]
  - NAUSEA [None]
  - VOMITING [None]
  - WHITE BLOOD CELLS URINE POSITIVE [None]
